FAERS Safety Report 15285835 (Version 2)
Quarter: 2018Q3

REPORT INFORMATION
  Report Type: Report from Study
  Country: US (occurrence: US)
  Receive Date: 20180816
  Receipt Date: 20180911
  Transmission Date: 20181010
  Serious: Yes (Hospitalization)
  Sender: FDA-Public Use
  Company Number: US-BAYER-2018-143081

PATIENT
  Age: 74 Year
  Sex: Male

DRUGS (7)
  1. ZYLOPRIM [Concomitant]
     Active Substance: ALLOPURINOL
  2. REGORAFENIB. [Suspect]
     Active Substance: REGORAFENIB
     Indication: MYELOFIBROSIS
     Dosage: 160 MG, QD
     Route: 048
     Dates: start: 20180723, end: 20180727
  3. ZOVIRAX [Concomitant]
     Active Substance: ACYCLOVIR
  4. TYLENOL [Concomitant]
     Active Substance: ACETAMINOPHEN
  5. SODIUM BICARBONATE. [Concomitant]
     Active Substance: SODIUM BICARBONATE
  6. PAXIL [Concomitant]
     Active Substance: PAROXETINE HYDROCHLORIDE
  7. JAKAVI [Concomitant]
     Active Substance: RUXOLITINIB

REACTIONS (3)
  - Pneumonitis [Recovered/Resolved]
  - Dyspnoea [Recovered/Resolved]
  - Asthenia [Recovered/Resolved]

NARRATIVE: CASE EVENT DATE: 20180727
